FAERS Safety Report 5268599-3 (Version None)
Quarter: 2007Q1

REPORT INFORMATION
  Report Type: 
  Country: None (occurrence: None)
  Receive Date: 20070315
  Receipt Date: 20070315
  Transmission Date: 20070707
  Serious: Yes (Hospitalization)
  Sender: FDA-Public Use
  Company Number: None

PATIENT
  Sex: Male
  Weight: 64.3 kg

DRUGS (1)
  1. TARCEVA [Suspect]
     Indication: PROSTATE CANCER
     Dosage: 150MG  PO - QD  PO   ON HOLD NOW
     Route: 048
     Dates: start: 20070221

REACTIONS (1)
  - INTESTINAL OBSTRUCTION [None]
